FAERS Safety Report 7989992-1 (Version None)
Quarter: 2011Q4

REPORT INFORMATION
  Report Type: 
  Country: None (occurrence: None)
  Receive Date: 20111219
  Receipt Date: 20110415
  Transmission Date: 20120403
  Serious: No
  Sender: FDA-Public Use
  Company Number: US-ASTRAZENECA-2004UW21305

PATIENT
  Age: 38 Year
  Sex: Female
  Weight: 66.2 kg

DRUGS (6)
  1. KLONOPIN [Concomitant]
  2. ASPIRIN [Concomitant]
  3. POTASSIUM CITRATE [Concomitant]
  4. TRILEPTAL [Concomitant]
  5. CRESTOR [Suspect]
     Indication: HYPERCHOLESTEROLAEMIA
     Route: 048
     Dates: start: 20040923
  6. NAPROXEN (ALEVE) [Concomitant]

REACTIONS (6)
  - ABDOMINAL PAIN [None]
  - BACK PAIN [None]
  - FAECES DISCOLOURED [None]
  - PANCREATIC NEOPLASM [None]
  - CONSTIPATION [None]
  - HEPATIC MASS [None]
